FAERS Safety Report 24263981 (Version 2)
Quarter: 2024Q3

REPORT INFORMATION
  Report Type: Report from Study
  Country: US (occurrence: US)
  Receive Date: 20240829
  Receipt Date: 20240909
  Transmission Date: 20241016
  Serious: Yes (Hospitalization, Other)
  Sender: JOHNSON AND JOHNSON
  Company Number: US-JNJFOC-20240217591

PATIENT
  Sex: Female
  Weight: 90.9 kg

DRUGS (6)
  1. SELEXIPAG [Suspect]
     Active Substance: SELEXIPAG
     Indication: Pulmonary arterial hypertension
     Route: 048
  2. SELEXIPAG [Suspect]
     Active Substance: SELEXIPAG
     Dosage: UPTRAVI DOSE 1200MCG TWICE DAILY USING 1 800MCG AND 2 200MCG TABLETS
     Route: 048
  3. SELEXIPAG [Suspect]
     Active Substance: SELEXIPAG
     Route: 048
  4. OPSUMIT [Concomitant]
     Active Substance: MACITENTAN
     Indication: Product used for unknown indication
  5. TADALAFIL [Concomitant]
     Active Substance: TADALAFIL
  6. SOTATERCEPT [Concomitant]
     Active Substance: SOTATERCEPT

REACTIONS (7)
  - Colitis [Unknown]
  - Hip arthroplasty [Unknown]
  - Cellulitis [Unknown]
  - Eye infection staphylococcal [Unknown]
  - Hepatic lesion [Unknown]
  - Diarrhoea [Unknown]
  - Headache [Recovering/Resolving]
